FAERS Safety Report 13461663 (Version 6)
Quarter: 2017Q3

REPORT INFORMATION
  Report Type: Report from Study
  Country: CA (occurrence: CA)
  Receive Date: 20170420
  Receipt Date: 20170912
  Transmission Date: 20171127
  Serious: Yes (Hospitalization, Other)
  Sender: FDA-Public Use
  Company Number: CA-GLAXOSMITHKLINE-CA2017GSK054418

PATIENT
  Sex: Female

DRUGS (2)
  1. MEPOLIZUMAB [Suspect]
     Active Substance: MEPOLIZUMAB
     Dosage: 100 MG, Z (MONTHLY)
     Dates: start: 20170322
  2. MEPOLIZUMAB [Suspect]
     Active Substance: MEPOLIZUMAB
     Indication: ASTHMA
     Dosage: 100 MG, Z (MONTHLY)

REACTIONS (12)
  - Cystic fibrosis [Unknown]
  - Burkholderia cepacia complex infection [Unknown]
  - Malaise [Unknown]
  - Cough [Unknown]
  - Insomnia [Unknown]
  - Sputum abnormal [Not Recovered/Not Resolved]
  - Condition aggravated [Unknown]
  - Sputum discoloured [Unknown]
  - Lung infection [Unknown]
  - Pseudomonas infection [Unknown]
  - Sputum increased [Unknown]
  - Productive cough [Unknown]
